FAERS Safety Report 20001126 (Version 5)
Quarter: 2022Q3

REPORT INFORMATION
  Report Type: Report from Study
  Country: US (occurrence: US)
  Receive Date: 20211027
  Receipt Date: 20220624
  Transmission Date: 20221027
  Serious: Yes (Other)
  Sender: FDA-Public Use
  Company Number: US-NOVARTISTESTPH-NVSC2021US239527

PATIENT
  Sex: Male

DRUGS (1)
  1. COSENTYX [Suspect]
     Active Substance: SECUKINUMAB
     Indication: Psoriasis
     Dosage: 300 MG, QMO (Q28 DAYS, BENEATH THE SKIN, USUALLY VIA INJECTION)
     Route: 058

REACTIONS (7)
  - Psoriatic arthropathy [Not Recovered/Not Resolved]
  - Onychomadesis [Recovering/Resolving]
  - Injection site haemorrhage [Not Recovered/Not Resolved]
  - Headache [Unknown]
  - Arthritis [Unknown]
  - Drug ineffective [Not Recovered/Not Resolved]
  - Product dose omission issue [Unknown]
